FAERS Safety Report 5144516-1 (Version None)
Quarter: 2006Q4

REPORT INFORMATION
  Report Type: 
  Country: None (occurrence: None)
  Receive Date: 20061031
  Receipt Date: 20061018
  Transmission Date: 20070319
  Serious: Yes (Other)
  Sender: FDA-Public Use
  Company Number: 2006127526

PATIENT
  Age: 23 Year
  Sex: Female

DRUGS (4)
  1. LYRICA [Suspect]
     Indication: BACK PAIN
     Dosage: 150 MG, ORAL
     Route: 048
  2. DIANE-35 (CYPROTERONE ACETATE, ETHINYLESTRADIOL) [Concomitant]
  3. ACETAMINOPHEN [Concomitant]
  4. ADVIL [Concomitant]

REACTIONS (4)
  - COORDINATION ABNORMAL [None]
  - FEELING ABNORMAL [None]
  - GAIT DISTURBANCE [None]
  - HYPOAESTHESIA [None]
